FAERS Safety Report 12373755 (Version 1)
Quarter: 2016Q2

REPORT INFORMATION
  Report Type: Spontaneous
  Country: US (occurrence: US)
  Receive Date: 20160517
  Receipt Date: 20160517
  Transmission Date: 20160815
  Serious: No
  Sender: FDA-Public Use
  Company Number: US-ASTRAZENECA-2016SE51775

PATIENT
  Sex: Female

DRUGS (2)
  1. DALIRESP [Suspect]
     Active Substance: ROFLUMILAST
     Indication: CHRONIC OBSTRUCTIVE PULMONARY DISEASE
     Route: 048
     Dates: start: 201601
  2. PREDNISONE. [Concomitant]
     Active Substance: PREDNISONE
     Indication: CHRONIC OBSTRUCTIVE PULMONARY DISEASE
     Route: 048

REACTIONS (9)
  - Insomnia [Unknown]
  - Sweat discolouration [Unknown]
  - Hot flush [Unknown]
  - Anxiety [Unknown]
  - Restlessness [Unknown]
  - Tremor [Unknown]
  - Amnesia [Unknown]
  - Weight decreased [Unknown]
  - Nervousness [Unknown]

NARRATIVE: CASE EVENT DATE: 201602
